FAERS Safety Report 6938660-3 (Version None)
Quarter: 2010Q3

REPORT INFORMATION
  Report Type: 
  Country: None (occurrence: None)
  Receive Date: 20100824
  Receipt Date: 20100817
  Transmission Date: 20110219
  Serious: Yes (Life-Threatening, Hospitalization)
  Sender: FDA-Public Use
  Company Number: PL-BAYER-201036610GPV

PATIENT
  Age: 22 Year
  Sex: Female

DRUGS (4)
  1. ASPIRIN [Suspect]
     Indication: BRONCHITIS
  2. PARACETAMOL WITH PSEUDOEPHEDRINE [Suspect]
     Indication: BRONCHITIS
  3. AMOXICILLIN [Suspect]
     Indication: BRONCHITIS
  4. BETA-LACTAMASE INHIBITOR [Suspect]
     Indication: BRONCHITIS

REACTIONS (14)
  - ASTHENIA [None]
  - BLISTER [None]
  - CONJUNCTIVITIS INFECTIVE [None]
  - DRY EYE [None]
  - DYSPNOEA [None]
  - EPIDERMOLYSIS [None]
  - ERYTHEMA [None]
  - MALAISE [None]
  - MYALGIA [None]
  - PYREXIA [None]
  - SKIN REACTION [None]
  - STOMATITIS [None]
  - TOXIC EPIDERMAL NECROLYSIS [None]
  - ULCERATIVE KERATITIS [None]
